FAERS Safety Report 6180849-8 (Version None)
Quarter: 2009Q2

REPORT INFORMATION
  Report Type: 
  Country: None (occurrence: None)
  Receive Date: 20090504
  Receipt Date: 20090203
  Transmission Date: 20091009
  Serious: No
  Sender: FDA-Public Use
  Company Number: KV200900166

PATIENT
  Age: 52 Year
  Sex: Male
  Weight: 77.1 kg

DRUGS (8)
  1. MORPHINE SULFATE [Suspect]
     Indication: BACK PAIN
     Dosage: 60 MG, TID PRN, ORAL
     Route: 048
     Dates: start: 20080613, end: 20080614
  2. ADVAIR DISKUS 100/50 [Concomitant]
  3. FIORICET [Concomitant]
  4. PROVENTIL /00139501/ (SALBUTAMOL) [Concomitant]
  5. LYRICA [Concomitant]
  6. HYDROCHLOROTHIAZIDE [Concomitant]
  7. LEVOTHYROXINE SODIUM [Concomitant]
  8. SINGULAIR /01362601/ (MONTELUKAST) [Concomitant]

REACTIONS (5)
  - ASTHENIA [None]
  - CONSTIPATION [None]
  - NAUSEA [None]
  - PYREXIA [None]
  - VOMITING [None]
